FAERS Safety Report 4449517-4 (Version None)
Quarter: 2004Q3

REPORT INFORMATION
  Report Type: 
  Country: None (occurrence: None)
  Receive Date: 20040913
  Receipt Date: 20040913
  Transmission Date: 20050211
  Serious: Yes (Other)
  Sender: FDA-Public Use
  Company Number: None

PATIENT
  Sex: Male
  Weight: 77.1115 kg

DRUGS (2)
  1. BEXTRA [Suspect]
     Indication: PAIN
     Dosage: 20MG  2QDX4TN 1QD  ORAL
     Route: 048
     Dates: start: 20040904, end: 20040912
  2. NYSTATIN [Suspect]
     Indication: ORAL CANDIDIASIS
     Dosage: 15CC  TID  ORAL
     Route: 048
     Dates: start: 20040908, end: 20040912

REACTIONS (1)
  - ABDOMINAL PAIN UPPER [None]
